FAERS Safety Report 16205567 (Version 1)
Quarter: 2019Q2

REPORT INFORMATION
  Report Type: Spontaneous
  Country: CN (occurrence: CN)
  Receive Date: 20190417
  Receipt Date: 20190417
  Transmission Date: 20190711
  Serious: Yes (Other)
  Sender: FDA-Public Use
  Company Number: CN-ROCHE-2303979

PATIENT
  Age: 69 Year
  Sex: Male

DRUGS (4)
  1. OXALIPLATIN. [Concomitant]
     Active Substance: OXALIPLATIN
     Indication: LARGE INTESTINE PERFORATION
     Route: 065
     Dates: start: 20181120
  2. OXALIPLATIN. [Concomitant]
     Active Substance: OXALIPLATIN
     Indication: ADENOCARCINOMA OF COLON
     Dosage: ON DAY 1
     Route: 065
     Dates: start: 20180729, end: 2018
  3. CAPECITABINE. [Suspect]
     Active Substance: CAPECITABINE
     Indication: ADENOCARCINOMA OF COLON
     Dosage: FROM DAY 1  TO DAY 14
     Route: 065
     Dates: start: 20180729, end: 2018
  4. CAPECITABINE. [Suspect]
     Active Substance: CAPECITABINE
     Indication: LARGE INTESTINE PERFORATION
     Route: 065
     Dates: start: 20181120

REACTIONS (6)
  - Pelvic adhesions [Unknown]
  - Ureteric dilatation [Unknown]
  - Cholecystitis [Unknown]
  - Renal hydrocele [Unknown]
  - Renal disorder [Unknown]
  - Cholelithiasis [Unknown]
